FAERS Safety Report 4825067-8 (Version None)
Quarter: 2005Q4

REPORT INFORMATION
  Report Type: 
  Country: None (occurrence: None)
  Receive Date: 20051109
  Receipt Date: 20051109
  Transmission Date: 20060501
  Serious: Yes (Death, Other)
  Sender: FDA-Public Use
  Company Number: None

PATIENT
  Age: 26 Year
  Sex: Female
  Weight: 70.3075 kg

DRUGS (1)
  1. PREDNISONE [Suspect]
     Indication: PLATELET COUNT DECREASED
     Dosage: 40       BID    PO
     Route: 048
     Dates: start: 20031028, end: 20031212

REACTIONS (3)
  - BLOOD GLUCOSE INCREASED [None]
  - HEPATIC STEATOSIS [None]
  - PNEUMONITIS [None]
